FAERS Safety Report 15842598 (Version 1)
Quarter: 2019Q1

REPORT INFORMATION
  Report Type: Spontaneous
  Country: US (occurrence: US)
  Receive Date: 20190118
  Receipt Date: 20190118
  Transmission Date: 20190417
  Serious: No
  Sender: FDA-Public Use
  Company Number: US-VERTEX PHARMACEUTICALS-2019-000528

PATIENT
  Sex: Male
  Weight: 77 kg

DRUGS (1)
  1. SYMDEKO [Suspect]
     Active Substance: IVACAFTOR\TEZACAFTOR
     Indication: CYSTIC FIBROSIS
     Dosage: UNK, BID
     Route: 048
     Dates: start: 2018, end: 2018

REACTIONS (2)
  - Abnormal behaviour [Unknown]
  - Fatigue [Unknown]

NARRATIVE: CASE EVENT DATE: 2018
